FAERS Safety Report 22185786 (Version 2)
Quarter: 2023Q2

REPORT INFORMATION
  Report Type: Spontaneous
  Country: BE (occurrence: None)
  Receive Date: 20230407
  Receipt Date: 20230421
  Transmission Date: 20230721
  Serious: Yes (Other)
  Sender: FDA-Public Use
  Company Number: 2023A074598

PATIENT
  Age: 50 Year
  Sex: Female
  Weight: 77 kg

DRUGS (10)
  1. FULVESTRANT [Suspect]
     Active Substance: FULVESTRANT
  2. KISQALI [Suspect]
     Active Substance: RIBOCICLIB
     Indication: Breast cancer metastatic
     Dosage: 600 MG ONCE A DAY FOR 21 DAYS THEN A 7-DAY BREAK
     Route: 048
     Dates: start: 20220623
  3. BISOPROLOL [Concomitant]
     Active Substance: BISOPROLOL
  4. NOVALGIN (METAMIZOLE SODIUM) [Concomitant]
     Active Substance: METAMIZOLE SODIUM
     Indication: Pain
  5. PERINDOPRIL [Concomitant]
     Active Substance: PERINDOPRIL
     Dosage: IN THE MORNING
  6. CHOLECALCIFEROL [Concomitant]
     Active Substance: CHOLECALCIFEROL
  7. GLICLAZIDE [Concomitant]
     Active Substance: GLICLAZIDE
     Dosage: IN THE MORNING
  8. DAFALGAN [Concomitant]
     Active Substance: ACETAMINOPHEN
     Indication: Pain
  9. OXYCODONE HYDROCHLORIDE [Concomitant]
     Active Substance: OXYCODONE HYDROCHLORIDE
     Indication: Pain
     Dosage: IN THE MORNING1.0DF INTERMITTENT
  10. METFORMIN HYDROCHLORIDE [Concomitant]
     Active Substance: METFORMIN HYDROCHLORIDE

REACTIONS (2)
  - Ejection fraction decreased [Recovering/Resolving]
  - Dyspnoea at rest [Recovering/Resolving]
